FAERS Safety Report 8958919 (Version 1)
Quarter: 2012Q4

REPORT INFORMATION
  Report Type: 
  Country: GB (occurrence: GB)
  Receive Date: 20121212
  Receipt Date: 20121212
  Transmission Date: 20130627
  Serious: Yes (Other)
  Sender: FDA-Public Use
  Company Number: GB-MYLANLABS-2012S1024875

PATIENT
  Age: 35 Year
  Sex: Female
  Weight: 78 kg

DRUGS (7)
  1. MIRTAZAPINE [Suspect]
     Indication: ANXIETY
     Route: 048
     Dates: start: 20120921, end: 20121021
  2. MIRTAZAPINE [Suspect]
     Indication: DEPRESSION
     Route: 048
     Dates: start: 20120921, end: 20121021
  3. SERTRALINE [Suspect]
     Indication: ANXIETY
     Route: 048
     Dates: start: 20120828, end: 20121014
  4. SERTRALINE [Suspect]
     Indication: DEPRESSION
     Route: 048
     Dates: start: 20120828, end: 20121014
  5. ECHINACEA /01323501/ [Concomitant]
     Indication: IMMUNISATION
     Route: 048
  6. MILK THISTLE /05888901/ [Concomitant]
     Indication: DETOXIFICATION
     Route: 048
  7. SPIRULINA /07141501/ [Concomitant]
     Indication: PRODUCT USED FOR UNKNOWN INDICATION
     Route: 048

REACTIONS (1)
  - Drug-induced liver injury [Recovering/Resolving]
